FAERS Safety Report 4750769-1 (Version None)
Quarter: 2005Q3

REPORT INFORMATION
  Report Type: 
  Country: None (occurrence: None)
  Receive Date: 20050823
  Receipt Date: 20050818
  Transmission Date: 20060218
  Serious: Yes (Other)
  Sender: FDA-Public Use
  Company Number: US-MERCK-0508USA03163

PATIENT
  Sex: Female

DRUGS (2)
  1. MAXALT [Suspect]
     Indication: CLUSTER HEADACHE
     Route: 048
     Dates: start: 20050815, end: 20050815
  2. MAXALT [Suspect]
     Indication: MIGRAINE
     Route: 048
     Dates: start: 20050815, end: 20050815

REACTIONS (1)
  - FEELING DRUNK [None]
